FAERS Safety Report 20010591 (Version 1)
Quarter: 2021Q4

REPORT INFORMATION
  Report Type: Spontaneous
  Country: FR (occurrence: FR)
  Receive Date: 20211029
  Receipt Date: 20211029
  Transmission Date: 20220303
  Serious: Yes (Death, Congenital Anomaly, Other)
  Sender: FDA-Public Use
  Company Number: FR-ABBVIE-21K-056-4138947-00

PATIENT
  Sex: Female

DRUGS (6)
  1. VALPROATE SODIUM [Suspect]
     Active Substance: VALPROATE SODIUM
     Indication: Maternal exposure timing unspecified
     Route: 064
  2. GABAPENTIN [Suspect]
     Active Substance: GABAPENTIN
     Indication: Maternal exposure timing unspecified
     Route: 064
  3. FOLIC ACID [Concomitant]
     Active Substance: FOLIC ACID
     Indication: Product used for unknown indication
     Route: 048
     Dates: start: 19960320
  4. ALDOMET [Concomitant]
     Active Substance: METHYLDOPA
     Indication: Product used for unknown indication
  5. CLOBAZAM [Concomitant]
     Active Substance: CLOBAZAM
     Indication: Product used for unknown indication
     Dates: start: 199610
  6. TRANXENE [Concomitant]
     Active Substance: CLORAZEPATE DIPOTASSIUM
     Indication: Product used for unknown indication
     Dates: start: 199610

REACTIONS (44)
  - Dysmorphism [Unknown]
  - Congenital nipple anomaly [Unknown]
  - Osteoarthritis [Unknown]
  - Hypertrichosis [Unknown]
  - Benign congenital hypotonia [Unknown]
  - Nervous system disorder [Unknown]
  - Foetal heart rate decreased [Unknown]
  - Skin mass [Unknown]
  - Hair growth abnormal [Unknown]
  - Eye disorder [Unknown]
  - Bradycardia neonatal [Unknown]
  - Hypotonia neonatal [Unknown]
  - Respiratory distress [Unknown]
  - Death [Fatal]
  - Hypoglycaemia neonatal [Unknown]
  - Dyspnoea [Unknown]
  - Cyanosis [Unknown]
  - Moaning [Unknown]
  - Neonatal aspiration [Unknown]
  - Tremor [Unknown]
  - Cardiac murmur [Unknown]
  - Conduction disorder [Unknown]
  - Congenital cerebral cyst [Unknown]
  - Neonatal intestinal obstruction [Unknown]
  - Gastroenteritis Escherichia coli [Unknown]
  - Pulmonary arterial hypertension [Unknown]
  - Urethral dilatation [Unknown]
  - Congenital hepatomegaly [Unknown]
  - Abdominal distension [Unknown]
  - Intestinal malrotation [Unknown]
  - Urinary tract disorder [Unknown]
  - Bone deformity [Unknown]
  - Congenital hydronephrosis [Unknown]
  - Pelvi-ureteric obstruction [Unknown]
  - Appendicectomy [Unknown]
  - Cerebellar hypoplasia [Unknown]
  - Congenital cerebral cyst [Unknown]
  - Pulmonary arterial hypertension [Unknown]
  - Ventricular septal defect [Unknown]
  - Vomiting [Unknown]
  - Hirsutism [Unknown]
  - Seizure [Unknown]
  - Dyskinesia [Unknown]
  - Foetal exposure during pregnancy [Unknown]

NARRATIVE: CASE EVENT DATE: 19961022
